FAERS Safety Report 13131316 (Version 10)
Quarter: 2018Q3

REPORT INFORMATION
  Report Type: Spontaneous
  Country: DE (occurrence: DE)
  Receive Date: 20170119
  Receipt Date: 20180809
  Transmission Date: 20181010
  Serious: Yes (Hospitalization, Other)
  Sender: FDA-Public Use
  Company Number: DE-PFIZER INC-2017022667

PATIENT
  Age: 78 Year
  Sex: Female

DRUGS (5)
  1. PIPAMPERONE [Suspect]
     Active Substance: PIPAMPERONE
     Dosage: 80 MG, DAILY
  2. METHOTREXATE SODIUM. [Suspect]
     Active Substance: METHOTREXATE SODIUM
     Indication: RHEUMATOID ARTHRITIS
     Dosage: UNK, WEEKLY (ONCE A WEEK)
  3. PIPAMPERONE [Suspect]
     Active Substance: PIPAMPERONE
     Indication: AGITATION
     Dosage: 20 MG, 2X/DAY
  4. MEMANTINE. [Concomitant]
     Active Substance: MEMANTINE
     Dosage: 5 MG, DAILY
  5. ZOPICLONE [Suspect]
     Active Substance: ZOPICLONE
     Indication: AGITATION
     Dosage: 7.5 MG, DAILY

REACTIONS (1)
  - Hypothermia [Recovered/Resolved]
